FAERS Safety Report 9484296 (Version 1)
Quarter: 2013Q3

REPORT INFORMATION
  Report Type: Spontaneous
  Country: US (occurrence: MX)
  Receive Date: 20130828
  Receipt Date: 20130828
  Transmission Date: 20140515
  Serious: Yes (Hospitalization, Other)
  Sender: FDA-Public Use
  Company Number: US-AMGEN-KDL401640

PATIENT
  Age: 52 Year
  Sex: Male
  Weight: 81.3 kg

DRUGS (2)
  1. ENBREL [Suspect]
     Indication: RHEUMATOID ARTHRITIS
     Dosage: 50 MG, QWK
     Route: 058
     Dates: start: 20040610, end: 20100228
  2. ENBREL [Suspect]
     Indication: ANKYLOSING SPONDYLITIS

REACTIONS (7)
  - Influenza [Unknown]
  - Pneumonia [Unknown]
  - Dialysis [Unknown]
  - Thrombosis [Unknown]
  - Coma [Unknown]
  - Decreased immune responsiveness [Unknown]
  - Bronchitis [Unknown]
